FAERS Safety Report 9791362 (Version 2)
Quarter: 2014Q1

REPORT INFORMATION
  Report Type: Spontaneous
  Country: US (occurrence: US)
  Receive Date: 20140101
  Receipt Date: 20140115
  Transmission Date: 20141002
  Serious: No
  Sender: FDA-Public Use
  Company Number: US-009507513-1312USA009082

PATIENT
  Age: 74 Year
  Sex: Female
  Weight: 70.3 kg

DRUGS (1)
  1. OXYTROL FOR WOMEN [Suspect]
     Indication: URINARY INCONTINENCE
     Dosage: UNK, Q4D
     Route: 062
     Dates: start: 20131029, end: 20131117

REACTIONS (3)
  - Inflammation [Unknown]
  - Erythema [Unknown]
  - Pruritus [Unknown]
